FAERS Safety Report 4745491-1 (Version None)
Quarter: 2005Q3

REPORT INFORMATION
  Report Type: 
  Country: None (occurrence: None)
  Receive Date: 20050815
  Receipt Date: 20050511
  Transmission Date: 20060218
  Serious: Yes (Hospitalization)
  Sender: FDA-Public Use
  Company Number: US-MERCK-0505USA01802

PATIENT
  Age: 62 Year
  Sex: Female
  Weight: 102 kg

DRUGS (20)
  1. VIOXX [Suspect]
     Indication: ARTHRITIS
     Route: 048
     Dates: start: 20000101, end: 20020101
  2. HUMULIN [Concomitant]
     Indication: DIABETES MELLITUS
     Route: 065
  3. COZAAR [Concomitant]
     Indication: HYPERTENSION
     Route: 048
     Dates: start: 19990101
  4. GEMFIBROZIL [Concomitant]
     Route: 065
  5. NORVASC [Concomitant]
     Indication: HYPERTENSION
     Route: 065
     Dates: start: 19990101
  6. PREMARIN [Concomitant]
     Route: 065
     Dates: start: 19810101, end: 20030101
  7. DITROPAN [Concomitant]
     Route: 065
  8. LOTRISONE [Concomitant]
     Route: 065
  9. SILVER NITRATE [Concomitant]
     Indication: SKIN DISORDER
     Route: 065
  10. MINOCYCLINE [Concomitant]
     Indication: SKIN DISORDER
     Route: 065
  11. ZOLOFT [Concomitant]
     Route: 065
  12. NOVOLIN [Concomitant]
     Indication: DIABETES MELLITUS
     Route: 065
  13. CIPROFLOXACIN HCL [Concomitant]
     Route: 065
  14. HYDROCHLOROTHIAZIDE AND TRIAMTERENE [Concomitant]
     Route: 065
  15. NIFEDIPINE [Concomitant]
     Route: 065
  16. VASOTEC RPD [Concomitant]
     Indication: HYPERTENSION
     Route: 048
  17. RANITIDINE [Concomitant]
     Route: 065
  18. TRIMOX [Concomitant]
     Route: 065
  19. COUMADIN [Concomitant]
     Route: 065
     Dates: start: 19970101
  20. ASPIRIN [Concomitant]
     Route: 065

REACTIONS (5)
  - CEREBROVASCULAR ACCIDENT [None]
  - FALL [None]
  - POLYTRAUMATISM [None]
  - SKIN LACERATION [None]
  - VOMITING [None]
